FAERS Safety Report 5676842-1 (Version None)
Quarter: 2008Q1

REPORT INFORMATION
  Report Type: 
  Country: None (occurrence: None)
  Receive Date: 20080324
  Receipt Date: 20080220
  Transmission Date: 20080703
  Serious: No
  Sender: FDA-Public Use
  Company Number: US-BAYER-200814976NA

PATIENT
  Sex: Female

DRUGS (1)
  1. YAZ [Suspect]
     Route: 048

REACTIONS (5)
  - BREAST ENLARGEMENT [None]
  - BREAST TENDERNESS [None]
  - MOOD ALTERED [None]
  - NERVOUSNESS [None]
  - PREMENSTRUAL SYNDROME [None]
